FAERS Safety Report 11173011 (Version 1)
Quarter: 2015Q2

REPORT INFORMATION
  Report Type: Spontaneous
  Country: US (occurrence: US)
  Receive Date: 20150608
  Receipt Date: 20150608
  Transmission Date: 20150821
  Serious: No
  Sender: FDA-Public Use
  Company Number: US-GLAXOSMITHKLINE-US2015076494

PATIENT
  Age: 52 Year
  Sex: Female

DRUGS (5)
  1. LAMOTRIGINE. [Suspect]
     Active Substance: LAMOTRIGINE
     Indication: POST-TRAUMATIC STRESS DISORDER
     Dosage: 25 MG, QD
     Route: 048
     Dates: start: 201502
  2. LAMOTRIGINE. [Suspect]
     Active Substance: LAMOTRIGINE
     Indication: ANXIETY
  3. LEVOTHYROXINE [Concomitant]
     Active Substance: LEVOTHYROXINE
  4. LAMICTAL [Suspect]
     Active Substance: LAMOTRIGINE
     Indication: POST-TRAUMATIC STRESS DISORDER
     Dosage: 25 MG, QD
     Route: 048
     Dates: start: 2007, end: 20150519
  5. LAMICTAL [Suspect]
     Active Substance: LAMOTRIGINE
     Indication: ANXIETY

REACTIONS (5)
  - Smear cervix abnormal [Unknown]
  - Drug ineffective [Recovered/Resolved]
  - Stress [Unknown]
  - Loop electrosurgical excision procedure [Recovered/Resolved]
  - Drug dose omission [Unknown]

NARRATIVE: CASE EVENT DATE: 2012
